FAERS Safety Report 19703120 (Version 2)
Quarter: 2021Q3

REPORT INFORMATION
  Report Type: Spontaneous
  Country: JP (occurrence: JP)
  Receive Date: 20210816
  Receipt Date: 20210908
  Transmission Date: 20211014
  Serious: Yes (Death, Life-Threatening, Other)
  Sender: FDA-Public Use
  Company Number: JP-ROCHE-2890604

PATIENT
  Age: 26 Year
  Sex: Female
  Weight: 68 kg

DRUGS (12)
  1. BLINCYTO [Suspect]
     Active Substance: BLINATUMOMAB
     Indication: B PRECURSOR TYPE ACUTE LEUKAEMIA
     Route: 041
     Dates: start: 20200325, end: 20200331
  2. BESPONSA [Suspect]
     Active Substance: INOTUZUMAB OZOGAMICIN
     Route: 065
     Dates: start: 20200226, end: 20200226
  3. CYTARABINE. [Suspect]
     Active Substance: CYTARABINE
     Indication: PRODUCT USED FOR UNKNOWN INDICATION
     Dosage: UNK
     Route: 065
     Dates: start: 20200513
  4. PROGRAF [Suspect]
     Active Substance: TACROLIMUS
     Indication: ACUTE LYMPHOCYTIC LEUKAEMIA
     Dosage: 1.9?0.3 MG, QD
     Route: 065
     Dates: start: 20200528, end: 20200618
  5. CELLCEPT [Suspect]
     Active Substance: MYCOPHENOLATE MOFETIL\MYCOPHENOLATE MOFETIL HYDROCHLORIDE
     Indication: PROPHYLAXIS AGAINST GRAFT VERSUS HOST DISEASE
     Dosage: UNK
     Route: 065
     Dates: start: 2020
  6. BESPONSA [Suspect]
     Active Substance: INOTUZUMAB OZOGAMICIN
     Indication: ACUTE LYMPHOCYTIC LEUKAEMIA
     Route: 065
     Dates: start: 20200219, end: 20200219
  7. SOLU?CORTEF [Concomitant]
     Active Substance: HYDROCORTISONE SODIUM SUCCINATE
     Dosage: UNK
     Route: 065
  8. CYCLOPHOSPHAMIDE MONOHYDRATE [Concomitant]
     Active Substance: CYCLOPHOSPHAMIDE
     Dosage: UNK
     Route: 065
  9. SOLU?MEDROL [Concomitant]
     Active Substance: METHYLPREDNISOLONE SODIUM SUCCINATE
     Dosage: UNK
     Route: 065
  10. BLINCYTO [Suspect]
     Active Substance: BLINATUMOMAB
     Route: 041
     Dates: start: 20200401, end: 20200421
  11. BLINCYTO [Suspect]
     Active Substance: BLINATUMOMAB
     Route: 041
     Dates: start: 20200508, end: 20200512
  12. BESPONSA [Suspect]
     Active Substance: INOTUZUMAB OZOGAMICIN
     Route: 065
     Dates: start: 20200304, end: 20200304

REACTIONS (5)
  - Venoocclusive disease [Fatal]
  - Thrombotic microangiopathy [Not Recovered/Not Resolved]
  - Incision site haemorrhage [Unknown]
  - Shock haemorrhagic [Recovering/Resolving]
  - Septic shock [Fatal]

NARRATIVE: CASE EVENT DATE: 2020
